FAERS Safety Report 19178420 (Version 1)
Quarter: 2021Q2

REPORT INFORMATION
  Report Type: Spontaneous
  Country: US (occurrence: US)
  Receive Date: 20210426
  Receipt Date: 20210426
  Transmission Date: 20210717
  Serious: No
  Sender: FDA-Public Use
  Company Number: US-BRISTOL-MYERS SQUIBB COMPANY-BMS-2021-038715

PATIENT
  Age: 77 Year
  Sex: Female
  Weight: 104.32 kg

DRUGS (1)
  1. ELIQUIS [Suspect]
     Active Substance: APIXABAN
     Indication: CEREBROVASCULAR ACCIDENT PROPHYLAXIS
     Dosage: UNK UNK, BID
     Route: 048
     Dates: start: 2018

REACTIONS (3)
  - Contusion [Unknown]
  - Skin discolouration [Unknown]
  - Epistaxis [Unknown]

NARRATIVE: CASE EVENT DATE: 202104
